FAERS Safety Report 5092639-8 (Version None)
Quarter: 2006Q3

REPORT INFORMATION
  Report Type: 
  Country: None (occurrence: None)
  Receive Date: 20060727
  Receipt Date: 20060612
  Transmission Date: 20061208
  Serious: Yes (Other)
  Sender: FDA-Public Use
  Company Number: 2006074614

PATIENT
  Sex: Female

DRUGS (8)
  1. LYRICA [Suspect]
     Indication: NEUROPATHY
     Dosage: 150 MG (75 MG, 2 IN 1 D)
     Dates: start: 20060101
  2. HUMALOG [Concomitant]
  3. FUROSEMIDE [Concomitant]
  4. ESCITALOPRAM OXALATE [Concomitant]
  5. PROPOXYPHENE HCL [Concomitant]
  6. OMEPRAZOLE [Concomitant]
  7. FEXOFENADINE HCL [Concomitant]
  8. B COMPLEX (NICOTINAMIDE, PYRIDOXINE HYDROCHLORIDE, RIBOFLAVIN, THIAMIN [Concomitant]

REACTIONS (4)
  - BLOOD GLUCOSE DECREASED [None]
  - DIARRHOEA [None]
  - INSOMNIA [None]
  - NERVOUSNESS [None]
